FAERS Safety Report 17833626 (Version 1)
Quarter: 2020Q2

REPORT INFORMATION
  Report Type: Spontaneous
  Country: IL (occurrence: IL)
  Receive Date: 20200528
  Receipt Date: 20200528
  Transmission Date: 20200714
  Serious: Yes (Other)
  Sender: FDA-Public Use
  Company Number: IL-TEVA-2020-IL-1241139

PATIENT
  Age: 59 Year
  Sex: Female

DRUGS (1)
  1. VANCO-TEVA 1 GR [Suspect]
     Active Substance: VANCOMYCIN
     Route: 065

REACTIONS (1)
  - Antibiotic level above therapeutic [Unknown]
